FAERS Safety Report 20120330 (Version 1)
Quarter: 2021Q4

REPORT INFORMATION
  Report Type: Spontaneous
  Country: US (occurrence: None)
  Receive Date: 20211126
  Receipt Date: 20211126
  Transmission Date: 20220304
  Serious: No
  Sender: FDA-Public Use
  Company Number: None

PATIENT

DRUGS (2)
  1. PANTOPRAZOLE SODIUM [Suspect]
     Active Substance: PANTOPRAZOLE SODIUM
     Indication: Product used for unknown indication
     Dosage: OTHER ROUTE : INJECTION;?
     Route: 050
  2. AZITHROMYCIN [Suspect]
     Active Substance: AZITHROMYCIN
     Indication: Product used for unknown indication
     Dosage: OTHER ROUTE : INJECTION;?
     Route: 050

REACTIONS (5)
  - Product storage error [None]
  - Device dispensing error [None]
  - Product commingling [None]
  - Product label confusion [None]
  - Product packaging confusion [None]
